FAERS Safety Report 6701526-8 (Version None)
Quarter: 2010Q2

REPORT INFORMATION
  Report Type: 
  Country: None (occurrence: None)
  Receive Date: 20100427
  Receipt Date: 20100412
  Transmission Date: 20101027
  Serious: Yes (Other)
  Sender: FDA-Public Use
  Company Number: DSA_42930_2010

PATIENT
  Sex: Male

DRUGS (4)
  1. ATIVAN [Suspect]
     Indication: ANXIETY
     Dosage: (2 MG TID), (1 MG BID), (1 MG QID)
     Dates: start: 20080101, end: 20100101
  2. ATIVAN [Suspect]
     Indication: ANXIETY
     Dosage: (2 MG TID), (1 MG BID), (1 MG QID)
     Dates: start: 20100101, end: 20100101
  3. ATIVAN [Suspect]
     Indication: ANXIETY
     Dosage: (2 MG TID), (1 MG BID), (1 MG QID)
     Dates: start: 20100401
  4. LIBRAX [Concomitant]

REACTIONS (9)
  - ABDOMINAL PAIN UPPER [None]
  - BLOOD PRESSURE INCREASED [None]
  - CHEST PAIN [None]
  - DIVERTICULITIS [None]
  - HEART RATE INCREASED [None]
  - MALAISE [None]
  - NAUSEA [None]
  - UNEVALUABLE EVENT [None]
  - WITHDRAWAL SYNDROME [None]
